FAERS Safety Report 7763436-7 (Version None)
Quarter: 2011Q3

REPORT INFORMATION
  Report Type: 
  Country: None (occurrence: None)
  Receive Date: 20110920
  Receipt Date: 20110913
  Transmission Date: 20111222
  Serious: Yes (Death, Hospitalization)
  Sender: FDA-Public Use
  Company Number: US-ACTELION-A-US2011-52431

PATIENT

DRUGS (5)
  1. REVATIO [Concomitant]
  2. OXYGEN [Concomitant]
  3. TRACLEER [Suspect]
     Indication: PULMONARY ARTERIAL HYPERTENSION
     Dosage: UNK
     Route: 048
     Dates: start: 20080324, end: 20110812
  4. COUMADIN [Concomitant]
  5. CALCIUM CHANNEL BLOCKERS [Concomitant]

REACTIONS (4)
  - RIGHT VENTRICULAR FAILURE [None]
  - TRANSFUSION [None]
  - CONCOMITANT DISEASE PROGRESSION [None]
  - GASTROINTESTINAL HAEMORRHAGE [None]
